FAERS Safety Report 7600054-5 (Version None)
Quarter: 2011Q2

REPORT INFORMATION
  Report Type: 
  Country: None (occurrence: None)
  Receive Date: 20110629
  Receipt Date: 20110620
  Transmission Date: 20111010
  Serious: Yes (Disabling, Other)
  Sender: FDA-Public Use
  Company Number: 2011S1000909

PATIENT
  Age: 57 Year
  Sex: Male

DRUGS (10)
  1. PLAVIX [Concomitant]
  2. ASPIRIN [Concomitant]
  3. MEXITIL [Concomitant]
  4. SIGMART [Concomitant]
  5. ALLOPURINOL [Concomitant]
  6. LOSARTAN POTASSIUM [Concomitant]
  7. ISOSORBIDE DINITRATE [Concomitant]
  8. LIVALO [Suspect]
     Indication: DYSLIPIDAEMIA
     Dosage: 1 MG; 1X; PO; 4 MG; 1X; PO
     Route: 048
     Dates: start: 20110201, end: 20110516
  9. LIVALO [Suspect]
     Indication: DYSLIPIDAEMIA
     Dosage: 1 MG; 1X; PO; 4 MG; 1X; PO
     Route: 048
     Dates: start: 20110517, end: 20110620
  10. ZESTRIL [Concomitant]

REACTIONS (3)
  - TENDONITIS [None]
  - GAIT DISTURBANCE [None]
  - HEPATIC FUNCTION ABNORMAL [None]
